FAERS Safety Report 5052519-0 (Version None)
Quarter: 2006Q3

REPORT INFORMATION
  Report Type: 
  Country: None (occurrence: None)
  Receive Date: 20060717
  Receipt Date: 20060703
  Transmission Date: 20061208
  Serious: Yes (Hospitalization, Other)
  Sender: FDA-Public Use
  Company Number: PHNU2006DE02423

PATIENT

DRUGS (7)
  1. SANDIMMUNE [Suspect]
     Indication: RENAL FAILURE CHRONIC
     Dosage: 100MG/DAY
     Route: 048
  2. INEGY [Concomitant]
  3. PREDNISOLONE [Concomitant]
  4. ALLOPURINOL [Concomitant]
  5. ACETYLSALICYLIC ACID SRT [Concomitant]
  6. COAPROVEL [Concomitant]
  7. VENLAFAXINE HCL [Concomitant]

REACTIONS (4)
  - DEAFNESS UNILATERAL [None]
  - DEPRESSION [None]
  - MENINGEAL DISORDER [None]
  - MENTAL DISORDER [None]
